FAERS Safety Report 8259670-2 (Version None)
Quarter: 2012Q2

REPORT INFORMATION
  Report Type: 
  Country: None (occurrence: None)
  Receive Date: 20120404
  Receipt Date: 20120326
  Transmission Date: 20120825
  Serious: Yes (Other)
  Sender: FDA-Public Use
  Company Number: US-ASTRAZENECA-2012SE20233

PATIENT
  Age: 54 Year
  Sex: Female
  Weight: 95.3 kg

DRUGS (16)
  1. BACTRIM [Concomitant]
  2. ENABLEX [Concomitant]
  3. ZESTRIL [Suspect]
     Route: 048
  4. ASCORBIC ACID [Concomitant]
  5. PAXIL [Concomitant]
  6. ATIVAN [Concomitant]
     Dosage: 3 TIMES A DAY AS NEEDED
  7. VITAMIN D [Concomitant]
  8. EFFEXOR [Concomitant]
  9. NEXIUM [Suspect]
     Indication: GASTROOESOPHAGEAL REFLUX DISEASE
     Route: 048
  10. ASPIRIN [Concomitant]
  11. ACYCLOVIR [Concomitant]
  12. LOSARTAN POTASSIUM [Concomitant]
  13. FELODIPINE [Concomitant]
  14. TROUCH [Concomitant]
  15. CRESTOR [Suspect]
     Indication: BLOOD CHOLESTEROL
     Route: 048
  16. MYCELEX [Concomitant]

REACTIONS (4)
  - EROSIVE OESOPHAGITIS [None]
  - LEUKAEMIA [None]
  - DRUG HYPERSENSITIVITY [None]
  - OFF LABEL USE [None]
